FAERS Safety Report 4925796-1 (Version None)
Quarter: 2006Q1

REPORT INFORMATION
  Report Type: 
  Country: None (occurrence: None)
  Receive Date: 20060224
  Receipt Date: 20060224
  Transmission Date: 20060701
  Serious: Yes (Death)
  Sender: FDA-Public Use
  Company Number: None

PATIENT
  Age: 70 Year
  Sex: Female
  Weight: 72.8 kg

DRUGS (2)
  1. WARFARIN 6 MG BRISTOL-MEYERS SQUIBB [Suspect]
     Indication: PULMONARY EMBOLISM
     Dosage: 6 MG  DAILY PO
     Route: 048
     Dates: start: 20051114, end: 20051120
  2. LOVENOX [Suspect]
     Indication: PULMONARY EMBOLISM
     Dosage: 70 MG Q12 HOURS SQ
     Route: 058
     Dates: start: 20051114, end: 20051120

REACTIONS (10)
  - ABDOMINAL PAIN LOWER [None]
  - BLOOD PRESSURE SYSTOLIC DECREASED [None]
  - CARDIAC ARREST [None]
  - GROIN PAIN [None]
  - HAEMOGLOBIN DECREASED [None]
  - HYPOTENSION [None]
  - MENTAL STATUS CHANGES [None]
  - RENAL FAILURE ACUTE [None]
  - RETROPERITONEAL HAEMORRHAGE [None]
  - URINE OUTPUT DECREASED [None]
